FAERS Safety Report 6116965-6 (Version None)
Quarter: 2009Q1

REPORT INFORMATION
  Report Type: 
  Country: None (occurrence: None)
  Receive Date: 20090314
  Receipt Date: 20081229
  Transmission Date: 20090719
  Serious: No
  Sender: FDA-Public Use
  Company Number: US-ABBOTT-08P-163-0495304-00

PATIENT
  Sex: Female
  Weight: 47.67 kg

DRUGS (9)
  1. HUMIRA [Suspect]
     Indication: CROHN'S DISEASE
     Route: 058
     Dates: start: 20080814, end: 20080925
  2. LOMOTIL [Concomitant]
     Indication: CROHN'S DISEASE
     Route: 048
  3. IMODIUM [Concomitant]
     Indication: CROHN'S DISEASE
     Route: 048
  4. EVISTA [Concomitant]
     Indication: OSTEOPOROSIS
     Route: 048
  5. PANTOPRAZOLE SODIUM [Concomitant]
     Indication: GASTROOESOPHAGEAL REFLUX DISEASE
     Route: 048
  6. CLONAZEPAM [Concomitant]
     Indication: MUSCLE SPASMS
     Route: 048
  7. ROPINIROLE [Concomitant]
     Indication: RESTLESS LEGS SYNDROME
     Route: 048
  8. SULFAMETHOXASOLE DS [Concomitant]
     Indication: ILEOSTOMY
     Route: 048
  9. ONDANSETRON [Concomitant]
     Indication: NAUSEA
     Route: 048

REACTIONS (3)
  - PSORIASIS [None]
  - RASH ERYTHEMATOUS [None]
  - SKIN EXFOLIATION [None]
